FAERS Safety Report 25473191 (Version 1)
Quarter: 2025Q2

REPORT INFORMATION
  Report Type: Spontaneous
  Country: US (occurrence: None)
  Receive Date: 20250623
  Receipt Date: 20250623
  Transmission Date: 20250717
  Serious: Yes (Life-Threatening, Hospitalization)
  Sender: FDA-CTU
  Company Number: None

PATIENT
  Age: 73 Year
  Sex: Female
  Weight: 64.86 kg

DRUGS (7)
  1. DIETARY SUPPLEMENT\HERBALS [Suspect]
     Active Substance: DIETARY SUPPLEMENT\HERBALS
     Indication: Pain
     Route: 048
     Dates: start: 20250604, end: 20250604
  2. DEXAMETHASONE [Suspect]
     Active Substance: DEXAMETHASONE
  3. DICLOFENAC [Suspect]
     Active Substance: DICLOFENAC
  4. METHOCARBAMOL [Suspect]
     Active Substance: METHOCARBAMOL
  5. LOSARTAN [Concomitant]
     Active Substance: LOSARTAN
  6. ASPIRIN [Concomitant]
     Active Substance: ASPIRIN
  7. ATORVASTATIN [Concomitant]
     Active Substance: ATORVASTATIN

REACTIONS (1)
  - Anaphylactic shock [None]
